FAERS Safety Report 4426263-4 (Version None)
Quarter: 2004Q3

REPORT INFORMATION
  Report Type: 
  Country: None (occurrence: None)
  Receive Date: 20040811
  Receipt Date: 20040803
  Transmission Date: 20050211
  Serious: Yes (Hospitalization, Other)
  Sender: FDA-Public Use
  Company Number: HQWYE738803AUG04

PATIENT
  Age: 66 Year
  Sex: Male

DRUGS (6)
  1. CORDAREX (AMIODARONE, TABLET) [Suspect]
     Indication: ATRIAL FIBRILLATION
     Dosage: 200 MG 1X PER 1 DAY
     Route: 048
     Dates: start: 20021101
  2. AQUAPHOR (XIPAMIDE, TABLET) [Suspect]
     Indication: HYPERTENSION
     Dosage: 40 MG 1X PER 1 DAY
     Route: 048
     Dates: start: 20021101, end: 20031119
  3. RAMIPRIL [Suspect]
     Indication: HYPERTENSION
     Dosage: SEE IMAGE
     Route: 048
     Dates: start: 20021101, end: 20031101
  4. RAMIPRIL [Suspect]
     Indication: HYPERTENSION
     Dosage: SEE IMAGE
     Route: 048
     Dates: start: 20031101
  5. TOREM (TORASEMIDE,) [Suspect]
     Dosage: SEE IMAGE
     Route: 048
     Dates: start: 20021101, end: 20031101
  6. TOREM (TORASEMIDE,) [Suspect]
     Dosage: SEE IMAGE
     Route: 048
     Dates: start: 20031101

REACTIONS (4)
  - ASTHENIA [None]
  - DECREASED APPETITE [None]
  - DIARRHOEA [None]
  - RENAL FAILURE ACUTE [None]
